FAERS Safety Report 4658114-7 (Version None)
Quarter: 2005Q2

REPORT INFORMATION
  Report Type: 
  Country: None (occurrence: None)
  Receive Date: 20050509
  Receipt Date: 20050421
  Transmission Date: 20051028
  Serious: Yes (Other)
  Sender: FDA-Public Use
  Company Number: FLX20050005

PATIENT
  Age: 77 Year
  Sex: Male

DRUGS (3)
  1. FLUOXETINE [Suspect]
     Indication: DEPRESSION
     Dosage: 40 MG DAILY, PO
     Route: 048
     Dates: start: 19980101, end: 20040101
  2. MODAFINIL [Suspect]
     Indication: FATIGUE
     Dosage: PO
     Route: 048
     Dates: start: 20040101, end: 20040101
  3. SILDENAFIL CITRATE [Concomitant]

REACTIONS (10)
  - BRUXISM [None]
  - DYSKINESIA [None]
  - DYSTONIA [None]
  - EMOTIONAL DISTRESS [None]
  - FATIGUE [None]
  - JAW DISORDER [None]
  - PAIN IN JAW [None]
  - PARKINSONISM [None]
  - SPEECH DISORDER [None]
  - STRESS [None]
